FAERS Safety Report 8984697 (Version 1)
Quarter: 2012Q4

REPORT INFORMATION
  Report Type: Spontaneous
  Country: SE (occurrence: None)
  Receive Date: 20121217
  Receipt Date: 20121217
  Transmission Date: 20130627
  Serious: Yes (Death, Hospitalization, Other)
  Sender: FDA-Public Use
  Company Number: 2012314015

PATIENT
  Age: 63 Year
  Sex: Male
  Weight: 88 kg

DRUGS (6)
  1. FRAGMIN (DALTEPARIN SODIUM) SOLUTION FOR INJECTION [Suspect]
     Indication: PULMONARY EMBOLISM
  2. IRINOTECAN HCL [Suspect]
     Dates: start: 20120312
  3. VECTIBIX [Suspect]
     Indication: COLON CANCER METASTATIC
     Dosage: cyclic every other week
     Route: 042
     Dates: start: 201201
  4. 5-FU [Suspect]
     Indication: COLON CANCER METASTATIC
     Dates: start: 20120308
  5. OMEPRAZOLE (OMEPRAZOLE) [Concomitant]
  6. WARAN (WARFARIN SODIUM) [Concomitant]

REACTIONS (12)
  - Hepatic haemorrhage [None]
  - Intra-abdominal haemorrhage [None]
  - Swelling [None]
  - Blood test abnormal [None]
  - Haemoglobin decreased [None]
  - Skin reaction [None]
  - Mucous membrane disorder [None]
  - Skin necrosis [None]
  - Pulmonary embolism [None]
  - Blood potassium increased [None]
  - Stomatitis [None]
  - Hypophagia [None]
